FAERS Safety Report 9393423 (Version 1)
Quarter: 2013Q3

REPORT INFORMATION
  Report Type: Spontaneous
  Country: GB (occurrence: None)
  Receive Date: 20130705
  Receipt Date: 20130705
  Transmission Date: 20140515
  Serious: Yes (Hospitalization)
  Sender: FDA-Public Use
  Company Number: GB-023358

PATIENT
  Age: 72 Year
  Sex: Female

DRUGS (20)
  1. CHLORAMBUCIL [Suspect]
     Indication: CHRONIC LYMPHOCYTIC LEUKAEMIA
     Route: 048
     Dates: start: 20080414, end: 20080815
  2. RITUXIMAB [Suspect]
     Indication: CHRONIC LYMPHOCYTIC LEUKAEMIA
     Dosage: 4/07 MONTHS?INTRAVENOUS, (NOT OTHERWISE SPECIFIED)
     Route: 042
     Dates: start: 20080414
  3. INDANSETRON (ONDANSETRON) [Concomitant]
  4. DICLOFENAC GEL (DICLOFENAC) [Concomitant]
  5. ANUSOL CREAM (HYDROCORTISONE) [Concomitant]
  6. FORTISIP (OTHERS) [Concomitant]
  7. UNKNOWN SUPPLEMENT (OTHERS) [Concomitant]
  8. CHLORHEXIDINE (CHLORHEXIDINE) [Concomitant]
  9. POTASSIUM CHLORIDE (POTASSIUM CHLORIDE) [Concomitant]
  10. MAGNESIUM (MAGNESIUM) [Concomitant]
  11. PARACETAMOL (PARACETAMOL) [Concomitant]
  12. DIFFLAM (BENZYDAMINE) [Concomitant]
  13. METRONIDAZOLE (METRONIDAZOLE) [Concomitant]
  14. METOCLOPRAMIDE (METOCLOPRAMIDE) [Concomitant]
  15. CLEXANE (ENOXAPARIN) [Concomitant]
  16. CLARITHROMYCIN (CLARITHROMYCIN) [Concomitant]
  17. PEPTAC (SODIUM BICARBONATE) [Concomitant]
  18. CYCLIZINE (CYCLIZINE) [Concomitant]
  19. BETAHISTINE (BETAHISTINE) [Concomitant]
  20. CAVILON (OTHERS) [Concomitant]

REACTIONS (15)
  - Febrile neutropenia [None]
  - Encephalitis viral [None]
  - Nausea [None]
  - Vomiting [None]
  - Hyperhidrosis [None]
  - Malaise [None]
  - Cognitive disorder [None]
  - Confusional state [None]
  - Hypertonia [None]
  - Cogwheel rigidity [None]
  - Muscular weakness [None]
  - Speech disorder [None]
  - CSF protein increased [None]
  - CSF lymphocyte count increased [None]
  - Unevaluable event [None]
